FAERS Safety Report 13835334 (Version 17)
Quarter: 2019Q1

REPORT INFORMATION
  Report Type: Report from Study
  Country: GB (occurrence: GB)
  Receive Date: 20170804
  Receipt Date: 20190122
  Transmission Date: 20190417
  Serious: Yes (Hospitalization)
  Sender: FDA-Public Use
  Company Number: GB-ROCHE-1703765

PATIENT
  Sex: Male

DRUGS (5)
  1. ESBRIET [Suspect]
     Active Substance: PIRFENIDONE
     Route: 048
     Dates: end: 20170728
  2. ESBRIET [Suspect]
     Active Substance: PIRFENIDONE
     Dosage: UNSPECIFIED DOSAGE
     Route: 048
  3. ESBRIET [Suspect]
     Active Substance: PIRFENIDONE
     Route: 048
     Dates: start: 20170119
  4. ASPIRIN. [Concomitant]
     Active Substance: ASPIRIN
  5. ESBRIET [Suspect]
     Active Substance: PIRFENIDONE
     Indication: IDIOPATHIC PULMONARY FIBROSIS
     Route: 048
     Dates: start: 20150316

REACTIONS (36)
  - Dyspnoea [Unknown]
  - Productive cough [Not Recovered/Not Resolved]
  - Ill-defined disorder [Not Recovered/Not Resolved]
  - Abdominal discomfort [Unknown]
  - Photosensitivity reaction [Recovered/Resolved]
  - Sputum increased [Unknown]
  - Skin reaction [Unknown]
  - Lower respiratory tract infection [Unknown]
  - Hot flush [Not Recovered/Not Resolved]
  - Weight decreased [Not Recovered/Not Resolved]
  - Pain [Unknown]
  - Drug ineffective [Unknown]
  - Rash [Unknown]
  - Sleep disorder [Not Recovered/Not Resolved]
  - Erythema [Unknown]
  - Epigastric discomfort [Not Recovered/Not Resolved]
  - Back pain [Unknown]
  - Cataract [Recovered/Resolved]
  - Depressed mood [Unknown]
  - Hunger [Unknown]
  - Epigastric discomfort [Unknown]
  - Decreased appetite [Not Recovered/Not Resolved]
  - Renal pain [Not Recovered/Not Resolved]
  - Malaise [Unknown]
  - Rhinorrhoea [Unknown]
  - Night sweats [Not Recovered/Not Resolved]
  - Treatment noncompliance [Unknown]
  - Discomfort [Unknown]
  - Hypophagia [Not Recovered/Not Resolved]
  - Pulmonary function test decreased [Unknown]
  - Abdominal distension [Unknown]
  - Hypophagia [Unknown]
  - Poor quality sleep [Unknown]
  - Pulmonary thrombosis [Unknown]
  - Fatigue [Unknown]
  - Eating disorder [Not Recovered/Not Resolved]
